FAERS Safety Report 8219814-5 (Version None)
Quarter: 2012Q1

REPORT INFORMATION
  Report Type: 
  Country: None (occurrence: None)
  Receive Date: 20120319
  Receipt Date: 20120314
  Transmission Date: 20120608
  Serious: Yes (Death, Other)
  Sender: FDA-Public Use
  Company Number: PL-PFIZER INC-2012066186

PATIENT
  Age: 72 Year
  Sex: Male
  Weight: 72 kg

DRUGS (3)
  1. KETOPROFEN [Suspect]
     Indication: CANCER PAIN
     Dosage: 200 MG, 1X/DAY
     Route: 048
     Dates: start: 20110501
  2. MORPHINE SULFATE [Suspect]
     Indication: CANCER PAIN
     Dosage: 40 MG, 1X/DAY
     Route: 048
     Dates: start: 20111206
  3. OXYCODONE HCL [Suspect]
     Indication: CANCER PAIN
     Dosage: 40 MG, 1X/DAY
     Route: 048
     Dates: start: 20111205

REACTIONS (2)
  - DISEASE PROGRESSION [None]
  - PROSTATE CANCER [None]
